FAERS Safety Report 8819393 (Version 1)
Quarter: 2012Q4

REPORT INFORMATION
  Report Type: Spontaneous
  Country: US (occurrence: None)
  Receive Date: 20120927
  Receipt Date: 20120927
  Transmission Date: 20130627
  Serious: Yes (Congenital Anomaly)
  Sender: FDA-Public Use
  Company Number: 2012-00417

PATIENT

DRUGS (3)
  1. VALPROATE [Suspect]
     Indication: DRUG THERAPY
     Route: 064
  2. CARBAMAZEPINE [Suspect]
     Indication: DRUG THERAPY
     Route: 064
  3. PHENOBARBITAL [Suspect]
     Indication: DRUG THERAPY
     Route: 064

REACTIONS (3)
  - Congenital diaphragmatic hernia [None]
  - Ventricular septal defect [None]
  - Maternal drugs affecting foetus [None]
